FAERS Safety Report 20209565 (Version 1)
Quarter: 2021Q4

REPORT INFORMATION
  Report Type: Spontaneous
  Country: DE (occurrence: DE)
  Receive Date: 20211221
  Receipt Date: 20211221
  Transmission Date: 20220303
  Serious: Yes (Hospitalization, Other)
  Sender: FDA-Public Use
  Company Number: DE-ADRED-07546-01

PATIENT
  Age: 81 Year
  Sex: Female
  Weight: 72 kg

DRUGS (5)
  1. IBUPROFEN [Suspect]
     Active Substance: IBUPROFEN
     Indication: Product used for unknown indication
     Dosage: 600 MILLIGRAM (2X, TABLET)
     Route: 048
  2. DULOXETINE [Suspect]
     Active Substance: DULOXETINE
     Indication: Product used for unknown indication
     Dosage: 30 MILLIGRAM (1-0-0-0, SUSTAINED-RELEASE CAPSULES)
     Route: 048
  3. PIRIBEDIL [Concomitant]
     Active Substance: PIRIBEDIL
     Indication: Product used for unknown indication
     Dosage: 50 MILLIGRAM (1-1-0-0, SUSTAINED-RELEASE TABLETS)
     Route: 048
  4. PRAMIPEXOLE [Concomitant]
     Active Substance: PRAMIPEXOLE
     Indication: Product used for unknown indication
     Dosage: 0.35 MILLIGRAM (0-1-0-0, TABLET)
     Route: 048
  5. BISOPROLOL [Concomitant]
     Active Substance: BISOPROLOL
     Indication: Product used for unknown indication
     Dosage: 5 MILLIGRAM (1-0-0-0, TABLET)
     Route: 048

REACTIONS (6)
  - Haematochezia [Unknown]
  - Vomiting [Unknown]
  - Faeces soft [Unknown]
  - Nausea [Unknown]
  - Dry mouth [Unknown]
  - Product prescribing error [Unknown]
